FAERS Safety Report 20408966 (Version 1)
Quarter: 2022Q1

REPORT INFORMATION
  Report Type: Spontaneous
  Country: GB (occurrence: GB)
  Receive Date: 20220201
  Receipt Date: 20220201
  Transmission Date: 20220424
  Serious: Yes (Other)
  Sender: FDA-Public Use
  Company Number: None

PATIENT
  Age: 18 Year
  Sex: Female
  Weight: 72 kg

DRUGS (2)
  1. FLUOXETINE [Suspect]
     Active Substance: FLUOXETINE HYDROCHLORIDE
     Indication: Ill-defined disorder
     Dosage: 20MG
     Route: 048
     Dates: start: 20201116, end: 20210221
  2. MELATONIN [Concomitant]
     Active Substance: MELATONIN
     Indication: Ill-defined disorder

REACTIONS (4)
  - Somnolence [Recovered/Resolved]
  - Dyspepsia [Recovered/Resolved with Sequelae]
  - Nightmare [Recovered/Resolved]
  - Nausea [Recovered/Resolved]
